FAERS Safety Report 4576759-X (Version None)
Quarter: 2005Q1

REPORT INFORMATION
  Report Type: 
  Country: None (occurrence: None)
  Receive Date: 20050207
  Receipt Date: 20050120
  Transmission Date: 20050727
  Serious: Yes (Hospitalization)
  Sender: FDA-Public Use
  Company Number: ATO-05-0016

PATIENT
  Age: 74 Year
  Sex: Male
  Weight: 75.7507 kg

DRUGS (9)
  1. TRISENOX [Suspect]
     Indication: MULTIPLE MYELOMA
     Dosage: IVI
     Route: 042
     Dates: start: 20041206, end: 20050118
  2. VITAMIN C [Suspect]
     Indication: MULTIPLE MYELOMA
     Dosage: IVI
     Route: 042
     Dates: start: 20041206, end: 20050118
  3. MELPHALAN [Suspect]
     Indication: MULTIPLE MYELOMA
     Dosage: IVI
     Route: 042
     Dates: start: 20041206, end: 20050118
  4. ARANESP [Concomitant]
  5. ZOMETA [Concomitant]
  6. ASPIRIN [Concomitant]
  7. MULTI-VITAMINS [Concomitant]
  8. IRON [Concomitant]
  9. VIAGRA [Concomitant]

REACTIONS (2)
  - BLOOD MAGNESIUM INCREASED [None]
  - ELECTROCARDIOGRAM T WAVE INVERSION [None]
